FAERS Safety Report 7170569-5 (Version None)
Quarter: 2010Q4

REPORT INFORMATION
  Report Type: 
  Country: None (occurrence: None)
  Receive Date: 20101214
  Receipt Date: 20101214
  Transmission Date: 20110411
  Serious: Yes (Hospitalization)
  Sender: FDA-Public Use
  Company Number: None

PATIENT
  Age: 59 Year
  Sex: Male
  Weight: 68.0396 kg

DRUGS (1)
  1. LEVAQUIN [Suspect]
     Indication: DIVERTICULITIS
     Dosage: 1 - 500MG  2 X DAY PO
     Route: 048
     Dates: start: 20101206, end: 20101207

REACTIONS (10)
  - ARTHRALGIA [None]
  - BURNING SENSATION [None]
  - MUSCLE SWELLING [None]
  - MUSCULOSKELETAL STIFFNESS [None]
  - MYALGIA [None]
  - NERVOUS SYSTEM DISORDER [None]
  - NEURALGIA [None]
  - PAIN IN EXTREMITY [None]
  - TENDON DISORDER [None]
  - TENDON PAIN [None]
